FAERS Safety Report 5012355-8 (Version None)
Quarter: 2006Q2

REPORT INFORMATION
  Report Type: 
  Country: None (occurrence: None)
  Receive Date: 20060525
  Receipt Date: 20060525
  Transmission Date: 20061013
  Serious: Yes (Hospitalization)
  Sender: FDA-Public Use
  Company Number: None

PATIENT
  Age: 42 Year
  Sex: Female

DRUGS (2)
  1. ETOMIDATE [Suspect]
     Indication: ELECTROCONVULSIVE THERAPY
     Dosage: ONE TIME ONLY    IV  (DURATION: ONE TIME ONLY)
     Route: 042
  2. SUCCINYLCHOLINE       UNKNOWN [Suspect]
     Indication: ELECTROCONVULSIVE THERAPY
     Dosage: ONE TIME ONLY   IV  (DURATION: ONE TIME ONLY)
     Route: 042

REACTIONS (3)
  - ARRHYTHMIA [None]
  - PROCEDURAL COMPLICATION [None]
  - VENTRICULAR TACHYCARDIA [None]
